FAERS Safety Report 8482390-6 (Version None)
Quarter: 2012Q3

REPORT INFORMATION
  Report Type: 
  Country: None (occurrence: None)
  Receive Date: 20120702
  Receipt Date: 20120622
  Transmission Date: 20120928
  Serious: Yes (Hospitalization)
  Sender: FDA-Public Use
  Company Number: US-GLAXOSMITHKLINE-A0761171A

PATIENT
  Age: 65 Year
  Sex: Female
  Weight: 111.8 kg

DRUGS (7)
  1. ZETIA [Concomitant]
  2. ZOCOR [Concomitant]
  3. PROTONIX [Concomitant]
  4. AVANDIA [Suspect]
     Indication: TYPE 2 DIABETES MELLITUS
     Dosage: 8MG PER DAY
     Route: 048
     Dates: start: 20010605, end: 20070201
  5. STEROID [Suspect]
     Indication: SARCOIDOSIS
     Route: 065
  6. AVANDARYL [Suspect]
     Indication: TYPE 2 DIABETES MELLITUS
     Route: 048
     Dates: start: 20070220, end: 20070601
  7. SYNTHROID [Concomitant]

REACTIONS (3)
  - CARDIAC FAILURE CONGESTIVE [None]
  - MYOCARDIAL INFARCTION [None]
  - HEART INJURY [None]
